FAERS Safety Report 17396725 (Version 1)
Quarter: 2020Q1

REPORT INFORMATION
  Report Type: Spontaneous
  Country: DE (occurrence: DE)
  Receive Date: 20200210
  Receipt Date: 20200210
  Transmission Date: 20200409
  Serious: Yes (Hospitalization)
  Sender: FDA-Public Use
  Company Number: DE-MYLANLABS-2020M1013757

PATIENT
  Age: 81 Year
  Sex: Female
  Weight: 52 kg

DRUGS (11)
  1. ANASTROZOLE. [Suspect]
     Active Substance: ANASTROZOLE
     Indication: PRODUCT USED FOR UNKNOWN INDICATION
     Dosage: 1 MG, 1-0-0-0
  2. IPRAMOL TEVA [Concomitant]
     Dosage: 0,5 MG + 2,5 MG / 2,5 ML STERI-NEB L?SUNG F?R EINEN VERNE (NK MG, 1-1-1-0)
  3. APIXABAN [Concomitant]
     Active Substance: APIXABAN
     Dosage: 5 MG, 1-0-1-0
  4. NEBIVOLOL. [Concomitant]
     Active Substance: NEBIVOLOL
     Dosage: 5 MG, 0.5-0-0-0
  5. NALOXONE HYDROCHLORIDE W/TILIDINE HYDROCHLORI [Concomitant]
     Active Substance: NALOXONE HYDROCHLORIDE\TILIDINE HYDROCHLORIDE
     Dosage: 50|4 MG, 2-0-2-0
  6. ALENDRONATE [Suspect]
     Active Substance: ALENDRONATE SODIUM
     Indication: PRODUCT USED FOR UNKNOWN INDICATION
     Dosage: 70 MG, 1X
  7. VALSARTAN. [Concomitant]
     Active Substance: VALSARTAN
     Dosage: 80 MG, 1-0-0-0
  8. CALCIUM [Concomitant]
     Active Substance: CALCIUM
     Dosage: 500 MG, 1-0-0-0
  9. SPIOLTO RESPIMAT [Concomitant]
     Active Substance: OLODATEROL HYDROCHLORIDE\TIOTROPIUM BROMIDE MONOHYDRATE
     Dosage: 2|5 ?G, 1-0-0-
  10. ATORVASTATIN [Concomitant]
     Active Substance: ATORVASTATIN
     Dosage: 20 MG, 0-0-1-0
  11. PANTOPRAZOL                        /01263201/ [Concomitant]
     Active Substance: PANTOPRAZOLE
     Dosage: 40 MG, 0-0-1-0

REACTIONS (2)
  - Fall [Unknown]
  - Depressed level of consciousness [Unknown]
